FAERS Safety Report 5343994-2 (Version None)
Quarter: 2007Q2

REPORT INFORMATION
  Report Type: 
  Country: None (occurrence: None)
  Receive Date: 20070604
  Receipt Date: 20070523
  Transmission Date: 20071010
  Serious: Yes (Hospitalization)
  Sender: FDA-Public Use
  Company Number: HQWYE339324MAY07

PATIENT
  Sex: Male

DRUGS (5)
  1. SIROLIMUS [Suspect]
     Indication: PROPHYLAXIS AGAINST TRANSPLANT REJECTION
     Route: 048
     Dates: start: 20051122, end: 20070224
  2. SIROLIMUS [Suspect]
     Route: 048
     Dates: start: 20070225
  3. ALLOPURINOL [Concomitant]
     Route: 048
     Dates: start: 20070124
  4. LAMIVUDINE [Concomitant]
     Indication: HEPATITIS B VIRUS
     Route: 048
     Dates: start: 19990114
  5. LAMIVUDINE [Concomitant]
     Indication: ANTIVIRAL PROPHYLAXIS

REACTIONS (3)
  - INGUINAL HERNIA [None]
  - LUNG NEOPLASM [None]
  - LYMPHADENOPATHY [None]
